FAERS Safety Report 4558999-9 (Version None)
Quarter: 2005Q1

REPORT INFORMATION
  Report Type: 
  Country: None (occurrence: None)
  Receive Date: 20050124
  Receipt Date: 20041008
  Transmission Date: 20050727
  Serious: Yes (Hospitalization)
  Sender: FDA-Public Use
  Company Number: PHBS2004JP13563

PATIENT
  Age: 60 Year
  Sex: Male
  Weight: 71 kg

DRUGS (7)
  1. LAMISIL [Suspect]
     Indication: TINEA BLANCA
     Dosage: 125 MG, QD
     Route: 048
     Dates: start: 20040801, end: 20040910
  2. LEBENIN [Concomitant]
     Route: 048
  3. DEPAKENE [Suspect]
     Route: 048
  4. PHENOBAL [Suspect]
     Route: 048
  5. RIVOTRIL [Suspect]
     Dosage: 0.5 MG/D
     Route: 048
  6. ALEVIATIN [Suspect]
  7. CARBAMAZEPINE [Suspect]
     Dosage: 700 MG/D
     Route: 048

REACTIONS (5)
  - C-REACTIVE PROTEIN INCREASED [None]
  - ILEUS PARALYTIC [None]
  - MALAISE [None]
  - PLATELET COUNT DECREASED [None]
  - PYREXIA [None]
